FAERS Safety Report 24625872 (Version 2)
Quarter: 2024Q4

REPORT INFORMATION
  Report Type: Spontaneous
  Country: JP (occurrence: JP)
  Receive Date: 20241115
  Receipt Date: 20241130
  Transmission Date: 20250115
  Serious: Yes (Death, Other)
  Sender: BOEHRINGER INGELHEIM
  Company Number: JP-NBI-2024-BI-062149

PATIENT
  Age: 8 Decade
  Sex: Male

DRUGS (1)
  1. OFEV [Suspect]
     Active Substance: NINTEDANIB
     Indication: Interstitial lung disease

REACTIONS (6)
  - Acute respiratory distress syndrome [Fatal]
  - Metastases to bone [Unknown]
  - Squamous cell carcinoma of lung [Unknown]
  - Lymphangiosis carcinomatosa [Unknown]
  - Interstitial lung disease [Unknown]
  - Cement embolism [Unknown]
